FAERS Safety Report 8463337-5 (Version None)
Quarter: 2012Q2

REPORT INFORMATION
  Report Type: 
  Country: None (occurrence: None)
  Receive Date: 20120625
  Receipt Date: 20120618
  Transmission Date: 20120825
  Serious: Yes (Other)
  Sender: FDA-Public Use
  Company Number: US-US-EMD SERONO, INC.-7129353

PATIENT
  Sex: Female

DRUGS (4)
  1. REBIF [Suspect]
     Route: 058
     Dates: start: 20111214
  2. ADDERALL 5 [Concomitant]
     Indication: ASTHENIA
  3. REBIF [Suspect]
     Indication: MULTIPLE SCLEROSIS
     Route: 058
     Dates: start: 20050101
  4. XANAX [Concomitant]
     Indication: PANIC ATTACK

REACTIONS (5)
  - ARTHRALGIA [None]
  - FALL [None]
  - MULTIPLE SCLEROSIS RELAPSE [None]
  - INTERVERTEBRAL DISC PROTRUSION [None]
  - CEREBRAL CYST [None]
